FAERS Safety Report 20079660 (Version 1)
Quarter: 2021Q4

REPORT INFORMATION
  Report Type: Spontaneous
  Country: US (occurrence: US)
  Receive Date: 20211117
  Receipt Date: 20211117
  Transmission Date: 20220304
  Serious: Yes (Other)
  Sender: FDA-Public Use
  Company Number: US-GLAXOSMITHKLINE-US2021GSK235145

PATIENT
  Sex: Female

DRUGS (4)
  1. RANITIDINE [Suspect]
     Active Substance: RANITIDINE
     Indication: Gastrooesophageal reflux disease
     Dosage: 150 MG, 70% USAGE OF RX RANITIDINE WITH 30% USAGE OF OTC ZANTAC
     Route: 065
     Dates: start: 201001, end: 201909
  2. RANITIDINE [Suspect]
     Active Substance: RANITIDINE
     Indication: Gastrooesophageal reflux disease
     Dosage: 150 MG, 70% USAGE OF RX RANITIDINE WITH 30% USAGE OF OTC ZANTAC
     Route: 065
     Dates: start: 201001, end: 201909
  3. ZANTAC [Suspect]
     Active Substance: RANITIDINE HYDROCHLORIDE
     Indication: Gastrooesophageal reflux disease
     Dosage: 150 MG, 30% USAGE OF OTC ZANTAC IN CONJUNCTION WITH RX RANITIDINE
     Route: 065
     Dates: start: 201007, end: 201909
  4. RANITIDINE [Suspect]
     Active Substance: RANITIDINE
     Indication: Gastrooesophageal reflux disease
     Dosage: 150 MG, 30% USAGE OF OTC ZANTAC IN CONJUNCTION WITH RX RANITIDINE
     Route: 065
     Dates: start: 201007, end: 201909

REACTIONS (2)
  - Breast cancer [Unknown]
  - Breast cancer recurrent [Unknown]
